FAERS Safety Report 6873571-3 (Version None)
Quarter: 2010Q3

REPORT INFORMATION
  Report Type: 
  Country: None (occurrence: None)
  Receive Date: 20100723
  Receipt Date: 20090207
  Transmission Date: 20110219
  Serious: No
  Sender: FDA-Public Use
  Company Number: US-PFIZER INC-2009168808

PATIENT
  Sex: Female

DRUGS (8)
  1. CHANTIX [Suspect]
     Indication: SMOKING CESSATION THERAPY
  2. KEPPRA [Concomitant]
     Dosage: 2000MG/DAILY
  3. PREDNISONE [Concomitant]
     Dosage: 20MG/DAILY
  4. NORVASC [Concomitant]
     Dosage: 10MG/DAILY
  5. TYLENOL [Concomitant]
     Dosage: UNK
  6. CLONAZEPAM [Concomitant]
     Dosage: 0.5MG/DAILY
  7. PROVENTIL GENTLEHALER [Concomitant]
     Dosage: UNK
     Route: 039
  8. FLOVENT [Concomitant]
     Dosage: UNK
     Route: 039

REACTIONS (2)
  - INCREASED APPETITE [None]
  - WEIGHT DECREASED [None]
